FAERS Safety Report 20167179 (Version 1)
Quarter: 2021Q4

REPORT INFORMATION
  Report Type: Spontaneous
  Country: US (occurrence: None)
  Receive Date: 20211208
  Receipt Date: 20211208
  Transmission Date: 20220303
  Serious: No
  Sender: FDA-Public Use
  Company Number: None

PATIENT

DRUGS (2)
  1. DOXEPIN [Suspect]
     Active Substance: DOXEPIN
  2. FELODIPINE [Suspect]
     Active Substance: FELODIPINE

REACTIONS (2)
  - Constipation [None]
  - Drug ineffective [None]
